FAERS Safety Report 14543461 (Version 1)
Quarter: 2018Q1

REPORT INFORMATION
  Report Type: Spontaneous
  Country: FR (occurrence: FR)
  Receive Date: 20180216
  Receipt Date: 20180216
  Transmission Date: 20180509
  Serious: Yes (Hospitalization)
  Sender: FDA-Public Use
  Company Number: FR-SA-2018SA030691

PATIENT
  Sex: Female
  Weight: 65 kg

DRUGS (6)
  1. LIPANOR [Concomitant]
     Active Substance: CIPROFIBRATE
     Indication: HYPERTRIGLYCERIDAEMIA
     Route: 048
     Dates: start: 20171130
  2. RIFADINE [Suspect]
     Active Substance: RIFAMPIN
     Indication: DEVICE RELATED SEPSIS
     Route: 042
     Dates: start: 20171123, end: 20171204
  3. VANCOMYCINE [Suspect]
     Active Substance: VANCOMYCIN
     Indication: POST PROCEDURAL URINE LEAK
     Route: 042
     Dates: start: 20171123, end: 20171204
  4. PARACETAMOL [Concomitant]
     Active Substance: ACETAMINOPHEN
     Indication: ANALGESIC THERAPY
     Route: 048
     Dates: start: 20171228
  5. MINOCYCLINE HYDROCHLORIDE. [Suspect]
     Active Substance: MINOCYCLINE HYDROCHLORIDE
     Indication: DEVICE RELATED SEPSIS
     Dosage: MINOCYCLINE BASE
     Route: 048
     Dates: start: 20171204, end: 20171221
  6. RIMACTAN [Suspect]
     Active Substance: RIFAMPIN
     Indication: DEVICE RELATED SEPSIS
     Route: 048
     Dates: start: 20171204, end: 20171228

REACTIONS (7)
  - Vomiting [Recovering/Resolving]
  - Renal impairment [Recovering/Resolving]
  - Decreased appetite [Recovering/Resolving]
  - Nausea [Recovering/Resolving]
  - Cholestasis [Recovering/Resolving]
  - Tonic clonic movements [Recovering/Resolving]
  - Jaundice [Recovering/Resolving]

NARRATIVE: CASE EVENT DATE: 20171204
